FAERS Safety Report 9723433 (Version 1)
Quarter: 2013Q4

REPORT INFORMATION
  Report Type: Report from Study
  Country: DE (occurrence: DE)
  Receive Date: 20131202
  Receipt Date: 20131202
  Transmission Date: 20140711
  Serious: Yes (Death, Hospitalization)
  Sender: FDA-Public Use
  Company Number: DE-ABBVIE-13P-062-1174468-00

PATIENT
  Age: 76 Year
  Sex: Male
  Weight: 80 kg

DRUGS (12)
  1. ZEMPLAR [Suspect]
     Indication: PRODUCT USED FOR UNKNOWN INDICATION
     Route: 042
     Dates: start: 20100312
  2. ASS [Concomitant]
     Indication: PRODUCT USED FOR UNKNOWN INDICATION
  3. DIGITOXIN [Concomitant]
     Indication: PRODUCT USED FOR UNKNOWN INDICATION
  4. NEXIUM [Concomitant]
     Indication: PRODUCT USED FOR UNKNOWN INDICATION
  5. VIT D3 [Concomitant]
     Indication: PRODUCT USED FOR UNKNOWN INDICATION
  6. DREISAVIT [Concomitant]
     Indication: PRODUCT USED FOR UNKNOWN INDICATION
  7. EUPHYLONG [Concomitant]
     Indication: PRODUCT USED FOR UNKNOWN INDICATION
  8. BELOC-ZOK COMP [Concomitant]
     Indication: PRODUCT USED FOR UNKNOWN INDICATION
  9. OXIS TURBOHALER [Concomitant]
     Indication: PRODUCT USED FOR UNKNOWN INDICATION
  10. BICANORM [Concomitant]
     Indication: PRODUCT USED FOR UNKNOWN INDICATION
  11. DIFLUCAN [Concomitant]
     Indication: PRODUCT USED FOR UNKNOWN INDICATION
  12. HEPARIN [Concomitant]
     Indication: PRODUCT USED FOR UNKNOWN INDICATION

REACTIONS (5)
  - Death [Fatal]
  - Sepsis [Unknown]
  - Upper gastrointestinal haemorrhage [Unknown]
  - Cardiac failure [Unknown]
  - Diabetic foot [Unknown]
